FAERS Safety Report 25428178 (Version 4)
Quarter: 2025Q4

REPORT INFORMATION
  Report Type: Report from Study
  Country: CA (occurrence: CA)
  Receive Date: 20250612
  Receipt Date: 20251118
  Transmission Date: 20260117
  Serious: Yes (Death, Other)
  Sender: HLS THERAPEUTICS
  Company Number: CA-HLS-202501471

PATIENT
  Age: 43 Year
  Sex: Male

DRUGS (35)
  1. CLOZARIL [Suspect]
     Active Substance: CLOZAPINE
     Indication: Schizoaffective disorder
     Route: 065
     Dates: start: 20050426, end: 20251013
  2. CLOZARIL [Suspect]
     Active Substance: CLOZAPINE
     Indication: Schizoaffective disorder
     Dosage: 600 MG
     Route: 065
  3. CLOZARIL [Suspect]
     Active Substance: CLOZAPINE
     Indication: Schizoaffective disorder
     Dosage: HE TAKES 450 QHS AND 150 MG NOON
     Route: 065
  4. CLOZARIL [Suspect]
     Active Substance: CLOZAPINE
     Indication: Schizoaffective disorder
     Dosage: QNOON
     Route: 048
     Dates: start: 20250724
  5. CLOZARIL [Suspect]
     Active Substance: CLOZAPINE
     Indication: Schizoaffective disorder
     Dosage: QHS
     Route: 048
     Dates: start: 20240531
  6. CLOZARIL [Suspect]
     Active Substance: CLOZAPINE
     Indication: Schizoaffective disorder
     Dosage: QHS SCH
     Route: 048
     Dates: start: 20240221
  7. CLOZARIL [Suspect]
     Active Substance: CLOZAPINE
     Indication: Schizoaffective disorder
     Dosage: QNOON
     Route: 048
     Dates: start: 20250724
  8. CLOZARIL [Suspect]
     Active Substance: CLOZAPINE
     Indication: Schizoaffective disorder
     Dosage: 650 MG TOTAL DAILY DOSE
     Route: 048
     Dates: start: 20050426
  9. CLOBAZAM [Concomitant]
     Active Substance: CLOBAZAM
     Indication: Seizure
     Dosage: QHS
     Route: 048
     Dates: start: 20240605
  10. FLUVOXAMINE [Concomitant]
     Active Substance: FLUVOXAMINE
     Indication: Product used for unknown indication
     Dosage: STARTED: JUNE 2025
     Route: 065
  11. FLUVOXAMINE [Concomitant]
     Active Substance: FLUVOXAMINE
     Indication: Product used for unknown indication
     Dosage: QAM
     Route: 048
     Dates: start: 20250725
  12. Dlvalproex Sodium [Concomitant]
     Indication: Product used for unknown indication
     Dosage: QAMHS SCH? NEXT DOSE 13-APR-2024
     Route: 048
     Dates: start: 20240313
  13. POLYETHYLENE GLYCOL 3350 [Concomitant]
     Active Substance: POLYETHYLENE GLYCOL 3350
     Indication: Product used for unknown indication
     Dosage: 1 PACK QHS
     Route: 048
     Dates: start: 20231130
  14. Psyllium Hydrophilic  Muciltoid [Concomitant]
     Indication: Product used for unknown indication
     Route: 048
     Dates: start: 20241106
  15. ALBUTEROL [Concomitant]
     Active Substance: ALBUTEROL
     Indication: Dyspnoea
     Dosage: Q4H PRN 00 MEG MDL 200 DOSE INHALER?2 PUFF
     Route: 055
     Dates: start: 20240929
  16. SENNOSIDES [Concomitant]
     Active Substance: SENNOSIDES
     Indication: Product used for unknown indication
     Route: 048
     Dates: start: 20221019
  17. Sodium Biphosphate/  Sodium Phosphate [Concomitant]
     Indication: Constipation
     Dosage: PRN
     Route: 065
     Dates: start: 20241027
  18. TERBINAFINE HYDROCHLORIDE [Concomitant]
     Active Substance: TERBINAFINE HYDROCHLORIDE
     Indication: Product used for unknown indication
     Dosage: 1 % CREAM
     Route: 061
     Dates: start: 20250829
  19. ZINC SULFATE [Concomitant]
     Active Substance: ZINC SULFATE
     Indication: Haemorrhoids
     Dosage: QHS PRN
     Route: 065
     Dates: start: 20250818
  20. VITAMIN D [Concomitant]
     Active Substance: VITAMIN D NOS
     Indication: Product used for unknown indication
     Route: 048
     Dates: start: 20221020
  21. BISACODYL [Concomitant]
     Active Substance: BISACODYL
     Indication: Product used for unknown indication
     Dosage: QAM SCH
     Route: 048
     Dates: start: 20250906
  22. BENZTROPINE MESYLATE [Concomitant]
     Active Substance: BENZTROPINE MESYLATE
     Indication: Product used for unknown indication
     Route: 048
     Dates: start: 20250306
  23. ATROPINE SULFATE [Concomitant]
     Active Substance: ATROPINE SULFATE
     Indication: Drooling
     Dosage: 1 % DROPS 5 ML BOT ??QHS SCH
     Route: 060
     Dates: start: 20230719
  24. ATROPINE SULFATE [Concomitant]
     Active Substance: ATROPINE SULFATE
     Indication: Drooling
     Dosage: 1 % DROPS 5 ML BOTTLE DAILY PRN
     Route: 060
     Dates: start: 20230623
  25. ACETAMINOPHEN [Concomitant]
     Active Substance: ACETAMINOPHEN
     Indication: Pyrexia
     Dosage: 325 MG TAB EVERY 4 HOUR PRN
     Route: 048
     Dates: start: 20240110
  26. ACETAMINOPHEN [Concomitant]
     Active Substance: ACETAMINOPHEN
     Indication: Pain
     Dosage: 325 MG TAB EVERY 4 HOUR PRN
     Route: 048
     Dates: start: 20240110
  27. METFORMIN HYDROCHLORIDE [Concomitant]
     Active Substance: METFORMIN HYDROCHLORIDE
     Dosage: BID
     Route: 048
     Dates: start: 20250612
  28. MAGNESIUM [Concomitant]
     Active Substance: MAGNESIUM
     Indication: Product used for unknown indication
     Route: 048
     Dates: start: 20240112
  29. LORAZEPAM [Concomitant]
     Active Substance: LORAZEPAM
     Indication: Agitation
     Dosage: 0.5 MG TABLET BID
     Route: 048
     Dates: start: 20250422
  30. LORAZEPAM [Concomitant]
     Active Substance: LORAZEPAM
     Indication: Anxiety
     Dosage: 0.5 MG TABLET BID
     Route: 048
     Dates: start: 20250422
  31. LORAZEPAM [Concomitant]
     Active Substance: LORAZEPAM
     Indication: Agitation
     Dosage: PRN
     Route: 048
     Dates: start: 20250417
  32. LORAZEPAM [Concomitant]
     Active Substance: LORAZEPAM
     Indication: Anxiety
     Dosage: PRN
     Route: 048
     Dates: start: 20250417
  33. LACTULOSE [Concomitant]
     Active Substance: LACTULOSE
     Indication: Product used for unknown indication
     Dosage: BID 30 ML
     Route: 048
     Dates: start: 20241027
  34. HALOPERIDOL [Concomitant]
     Active Substance: HALOPERIDOL
     Indication: Product used for unknown indication
     Dosage: NEXT DOSE 01-AUG-2024 5 MG?01-AUG-2024: 15 MG ORAL QPM
     Route: 048
     Dates: start: 20240628
  35. GLYCERIN [Concomitant]
     Active Substance: GLYCERIN
     Indication: Constipation
     Dosage: PRN
     Route: 065
     Dates: start: 20241024

REACTIONS (6)
  - Hallucination, auditory [Unknown]
  - Death [Fatal]
  - Delusion [Unknown]
  - Seizure [Unknown]
  - Psychotic symptom [Unknown]
  - Bundle branch block right [Unknown]

NARRATIVE: CASE EVENT DATE: 20240201
